FAERS Safety Report 5762855-8 (Version None)
Quarter: 2008Q2

REPORT INFORMATION
  Report Type: 
  Country: None (occurrence: None)
  Receive Date: 20080609
  Receipt Date: 20080509
  Transmission Date: 20081010
  Serious: No
  Sender: FDA-Public Use
  Company Number: US-BAYER-200713552BCC

PATIENT
  Age: 16 Year
  Sex: Female

DRUGS (2)
  1. ALEVE [Suspect]
     Indication: DRUG USE FOR UNKNOWN INDICATION
     Route: 048
     Dates: start: 20071004
  2. TYLENOL [Suspect]
     Indication: DRUG USE FOR UNKNOWN INDICATION
     Dosage: TOTAL DAILY DOSE: 2600 MG  UNIT DOSE: 650 MG
     Route: 048
     Dates: start: 20071004

REACTIONS (2)
  - HYPOAESTHESIA [None]
  - VOMITING [None]
